FAERS Safety Report 23986196 (Version 2)
Quarter: 2024Q4

REPORT INFORMATION
  Report Type: Spontaneous
  Country: DE (occurrence: DE)
  Receive Date: 20240618
  Receipt Date: 20241003
  Transmission Date: 20250115
  Serious: Yes (Death)
  Sender: PFIZER
  Company Number: DE-ROCHE-3579089

PATIENT
  Sex: Female

DRUGS (1)
  1. ZIRABEV [Suspect]
     Active Substance: BEVACIZUMAB-BVZR
     Indication: Breast cancer female
     Dosage: UNK

REACTIONS (1)
  - Intestinal perforation [Fatal]
